FAERS Safety Report 4667036-7 (Version None)
Quarter: 2005Q2

REPORT INFORMATION
  Report Type: 
  Country: None (occurrence: None)
  Receive Date: 20050520
  Receipt Date: 20040928
  Transmission Date: 20051028
  Serious: Yes (Death, Other)
  Sender: FDA-Public Use
  Company Number: PHEH2004US10447

PATIENT
  Age: 72 Year
  Sex: Female
  Weight: 52 kg

DRUGS (14)
  1. AREDIA [Suspect]
     Indication: BREAST CANCER
     Dosage: 60 MG, Q2MO
     Dates: start: 19990106, end: 20020418
  2. ZOMETA [Suspect]
     Dosage: 4 MG, Q3MO
     Dates: start: 20020715, end: 20030515
  3. NAVELBINE [Concomitant]
  4. CHEMOTHERAPEUTICS,OTHER [Concomitant]
  5. DOXIL [Concomitant]
  6. HYDROCODONE BITARTRATE [Concomitant]
  7. MAGIC MOUTHWASH [Concomitant]
  8. NEURONTIN [Concomitant]
     Dosage: 400 MG, TID
  9. AMBIEN [Concomitant]
  10. CYCLOPHOSPHAMIDE + 5-FU + METHOTREXATE [Concomitant]
  11. TAXOL [Concomitant]
  12. TAXOTERE [Concomitant]
  13. XELODA [Concomitant]
  14. STEROIDS NOS [Concomitant]

REACTIONS (8)
  - ANAEMIA [None]
  - BLOOD CREATININE INCREASED [None]
  - IMPAIRED HEALING [None]
  - MALIGNANT NEOPLASM PROGRESSION [None]
  - OSTEONECROSIS [None]
  - RENAL FAILURE [None]
  - TOOTH EXTRACTION [None]
  - WOUND DEBRIDEMENT [None]
